FAERS Safety Report 16302181 (Version 1)
Quarter: 2019Q2

REPORT INFORMATION
  Report Type: Spontaneous
  Country: US (occurrence: US)
  Receive Date: 20190512
  Receipt Date: 20190512
  Transmission Date: 20190711
  Serious: No
  Sender: FDA-Public Use
  Company Number: US-AMGEN-USASP2019072107

PATIENT
  Age: 61 Year
  Sex: Female

DRUGS (21)
  1. NICOTINE. [Concomitant]
     Active Substance: NICOTINE
     Dosage: UNK, (TRANSDERMAL PATCH)
  2. METOPROLOL SUCCINATE. [Concomitant]
     Active Substance: METOPROLOL SUCCINATE
  3. CLONAZEPAM. [Concomitant]
     Active Substance: CLONAZEPAM
  4. RANITIDINE. [Concomitant]
     Active Substance: RANITIDINE
  5. ABILIFY [Concomitant]
     Active Substance: ARIPIPRAZOLE
  6. REPATHA [Suspect]
     Active Substance: EVOLOCUMAB
     Indication: CEREBROVASCULAR ACCIDENT
  7. FOLIC ACID. [Concomitant]
     Active Substance: FOLIC ACID
  8. TOPROL XL [Concomitant]
     Active Substance: METOPROLOL SUCCINATE
  9. NAPROXEN. [Concomitant]
     Active Substance: NAPROXEN
  10. SPIRIVA [Concomitant]
     Active Substance: TIOTROPIUM BROMIDE MONOHYDRATE
  11. RANEXA [Concomitant]
     Active Substance: RANOLAZINE
     Dosage: UNK
  12. ASCORBIC ACID. [Concomitant]
     Active Substance: ASCORBIC ACID
  13. SPIRONOLACTONE. [Concomitant]
     Active Substance: SPIRONOLACTONE
  14. LISINOPRIL. [Concomitant]
     Active Substance: LISINOPRIL
  15. EFFEXOR [Concomitant]
     Active Substance: VENLAFAXINE HYDROCHLORIDE
  16. NITROGLYCERIN. [Concomitant]
     Active Substance: NITROGLYCERIN
     Indication: CHEST PAIN
     Dosage: 4 MILLIGRAM
     Route: 060
  17. ISOSORBIDE MONONITRATE. [Concomitant]
     Active Substance: ISOSORBIDE MONONITRATE
  18. VITAMIN D3 [Concomitant]
     Active Substance: CHOLECALCIFEROL
  19. REPATHA [Suspect]
     Active Substance: EVOLOCUMAB
     Indication: CORONARY ARTERY DISEASE
     Dosage: 140 MILLIGRAM, Q2WK
     Route: 065
  20. PLAVIX [Concomitant]
     Active Substance: CLOPIDOGREL BISULFATE
  21. METFORMIN [Concomitant]
     Active Substance: METFORMIN HYDROCHLORIDE

REACTIONS (2)
  - Rash [Unknown]
  - Skin exfoliation [Unknown]
